FAERS Safety Report 7726533-8 (Version None)
Quarter: 2011Q3

REPORT INFORMATION
  Report Type: 
  Country: None (occurrence: None)
  Receive Date: 20110902
  Receipt Date: 20110824
  Transmission Date: 20111222
  Serious: Yes (Other)
  Sender: FDA-Public Use
  Company Number: PHEH2011US02489

PATIENT
  Sex: Female

DRUGS (2)
  1. PROGESTERONE [Concomitant]
     Dosage: 500 MG, QOD
  2. VIVELLE-DOT [Suspect]
     Dosage: 0.1 MG, QOD
     Route: 062
     Dates: start: 20090101

REACTIONS (4)
  - ABORTION SPONTANEOUS [None]
  - VISION BLURRED [None]
  - INCORRECT DOSE ADMINISTERED [None]
  - MATERNAL EXPOSURE DURING PREGNANCY [None]
